FAERS Safety Report 7033737-9 (Version None)
Quarter: 2010Q4

REPORT INFORMATION
  Report Type: 
  Country: None (occurrence: None)
  Receive Date: 20101007
  Receipt Date: 20100921
  Transmission Date: 20110411
  Serious: Yes (Other)
  Sender: FDA-Public Use
  Company Number: PHHY2010BR65726

PATIENT
  Age: 69 Year
  Sex: Female
  Weight: 82 kg

DRUGS (11)
  1. DIOVAN [Suspect]
     Dosage: 80 MG DAILY
     Dates: start: 20040818
  2. DIOVAN [Suspect]
     Dosage: 160 MG DAILY
  3. DIOVAN AMLO [Suspect]
     Dosage: 160/5 MG
     Dates: start: 20070514
  4. APRESOLINE [Concomitant]
     Dosage: UNK
  5. AMLODIPINE [Concomitant]
     Dosage: 5 MG DAILY
  6. ATENOLOL [Concomitant]
     Dosage: 50 MG DAILY
  7. VYTORIN [Concomitant]
     Dosage: UNK
  8. METFORMIN [Concomitant]
     Dosage: 500 MG EVENING MEALS
  9. TANAKAN [Concomitant]
     Dosage: 80 MG 3X DAY
  10. PLAVIX [Concomitant]
     Dosage: 75 MG
  11. ASPIRIN [Concomitant]
     Dosage: 100 MG

REACTIONS (7)
  - ANGIOPLASTY [None]
  - BLOOD PRESSURE DECREASED [None]
  - CAROTID ARTERIOSCLEROSIS [None]
  - EJECTION FRACTION ABNORMAL [None]
  - OEDEMA PERIPHERAL [None]
  - STENT PLACEMENT [None]
  - VERTIGO [None]
